FAERS Safety Report 18161074 (Version 4)
Quarter: 2024Q1

REPORT INFORMATION
  Report Type: Spontaneous
  Country: US (occurrence: US)
  Receive Date: 20200817
  Receipt Date: 20240215
  Transmission Date: 20240409
  Serious: Yes (Other)
  Sender: FDA-Public Use
  Company Number: US-GILEAD-2020-0490091

PATIENT
  Sex: Male
  Weight: 95.7 kg

DRUGS (87)
  1. ATRIPLA [Suspect]
     Active Substance: EFAVIRENZ\EMTRICITABINE\TENOFOVIR DISOPROXIL FUMARATE
     Indication: HIV infection
     Dosage: UNK
     Route: 048
     Dates: start: 2002
  2. VIREAD [Suspect]
     Active Substance: TENOFOVIR DISOPROXIL FUMARATE
     Indication: HIV infection
     Dosage: UNK
     Route: 048
     Dates: start: 2002
  3. VIREAD [Suspect]
     Active Substance: TENOFOVIR DISOPROXIL FUMARATE
     Dosage: UNK
     Route: 048
     Dates: start: 2006, end: 2010
  4. TRUVADA [Suspect]
     Active Substance: EMTRICITABINE\TENOFOVIR DISOPROXIL FUMARATE
     Indication: HIV infection
     Dosage: UNK
     Route: 048
     Dates: start: 2002
  5. TRUVADA [Suspect]
     Active Substance: EMTRICITABINE\TENOFOVIR DISOPROXIL FUMARATE
     Dosage: UNK
     Route: 048
     Dates: start: 2010, end: 2014
  6. LEXIVA [Concomitant]
     Active Substance: FOSAMPRENAVIR CALCIUM
     Indication: HIV infection
  7. TRIUMEQ [Concomitant]
     Active Substance: ABACAVIR SULFATE\DOLUTEGRAVIR SODIUM\LAMIVUDINE
     Indication: HIV infection
     Dosage: UNK
     Route: 065
     Dates: start: 201508, end: 201509
  8. ACYCLOVIR [Concomitant]
     Active Substance: ACYCLOVIR
  9. ADDERALL [Concomitant]
     Active Substance: AMPHETAMINE ASPARTATE\AMPHETAMINE SULFATE\DEXTROAMPHETAMINE SACCHARATE\DEXTROAMPHETAMINE SULFATE
  10. ALBUTEROL SULFATE [Concomitant]
     Active Substance: ALBUTEROL SULFATE
  11. ALENDRONATE SODIUM [Concomitant]
     Active Substance: ALENDRONATE SODIUM
  12. ALPRAZOLAM [Concomitant]
     Active Substance: ALPRAZOLAM
  13. AMBIEN [Concomitant]
     Active Substance: ZOLPIDEM TARTRATE
  14. AMOXICILLIN [Concomitant]
     Active Substance: AMOXICILLIN
  15. AMOXICILLIN [Concomitant]
     Active Substance: AMOXICILLIN
  16. DEXTROAMPHET SACCHARAT, AMPHET ASPARTATE, DEXTROAMPHET SULFATE AND AMP [Concomitant]
     Active Substance: AMPHETAMINE ASPARTATE\AMPHETAMINE ASPARTATE MONOHYDRATE\AMPHETAMINE SULFATE\DEXTROAMPHETAMINE SACCHA
  17. ARNUITY ELLIPTA [Concomitant]
     Active Substance: FLUTICASONE FUROATE
  18. AUGMENTIN [Concomitant]
     Active Substance: AMOXICILLIN\CLAVULANATE POTASSIUM
  19. AZITHROMYCIN [Concomitant]
     Active Substance: AZITHROMYCIN
  20. BENZONATATE [Concomitant]
     Active Substance: BENZONATATE
  21. CETIRIZINE HCL [Concomitant]
     Active Substance: CETIRIZINE HYDROCHLORIDE
  22. CHANTIX [Concomitant]
     Active Substance: VARENICLINE TARTRATE
  23. CLINDAMYCIN HYDROCHLORIDE [Concomitant]
     Active Substance: CLINDAMYCIN HYDROCHLORIDE
  24. CLONAZEPAM [Concomitant]
     Active Substance: CLONAZEPAM
  25. CYCLOBENZAPRINE [Concomitant]
     Active Substance: CYCLOBENZAPRINE
  26. CYMBALTA [Concomitant]
     Active Substance: DULOXETINE HYDROCHLORIDE
  27. DELSYM [Concomitant]
     Active Substance: DEXTROMETHORPHAN
  28. DEPO-TESTOSTERONE [Concomitant]
     Active Substance: TESTOSTERONE CYPIONATE
  29. DEXAMETHASONE [Concomitant]
     Active Substance: DEXAMETHASONE
  30. DEXTROAMPHETAMINE [Concomitant]
     Active Substance: DEXTROAMPHETAMINE
  31. DOCUSATE SODIUM [Concomitant]
     Active Substance: DOCUSATE SODIUM
  32. DOXYCYCLINE [Concomitant]
     Active Substance: DOXYCYCLINE
  33. DULERA [Concomitant]
     Active Substance: FORMOTEROL FUMARATE DIHYDRATE\MOMETASONE FUROATE
  34. DULOXETINE HYDROCHLORIDE [Concomitant]
     Active Substance: DULOXETINE HYDROCHLORIDE
  35. FAMOTIDINE [Concomitant]
     Active Substance: FAMOTIDINE
  36. FENOFIBRATE [Concomitant]
     Active Substance: FENOFIBRATE
  37. FLONASE ALLERGY RELIEF [Concomitant]
     Active Substance: FLUTICASONE PROPIONATE
  38. FLUTICASONE [Concomitant]
     Active Substance: FLUTICASONE
  39. GABAPENTIN [Concomitant]
     Active Substance: GABAPENTIN
  40. HYDROCHLOROTHIAZIDE [Concomitant]
     Active Substance: HYDROCHLOROTHIAZIDE
  41. HYDROCODONE BITARTRATE AND ACETAMINOPHEN [Concomitant]
     Active Substance: ACETAMINOPHEN\HYDROCODONE BITARTRATE
  42. HYDROCORTISONE [Concomitant]
     Active Substance: HYDROCORTISONE
  43. HYOSCYAMINE [Concomitant]
     Active Substance: HYOSCYAMINE
  44. KLOR-CON [Concomitant]
     Active Substance: POTASSIUM CHLORIDE
  45. LEVOFLOXACIN [Concomitant]
     Active Substance: LEVOFLOXACIN
  46. LISINOPRIL [Concomitant]
     Active Substance: LISINOPRIL
  47. LOPERAMIDE [Concomitant]
     Active Substance: LOPERAMIDE
  48. MELOXICAM [Concomitant]
     Active Substance: MELOXICAM
  49. MONTELUKAST [Concomitant]
     Active Substance: MONTELUKAST SODIUM
  50. MORPHINE SULFATE [Concomitant]
     Active Substance: MORPHINE SULFATE
  51. NARCAN [Concomitant]
     Active Substance: NALOXONE HYDROCHLORIDE
  52. NASACORT [Concomitant]
     Active Substance: TRIAMCINOLONE ACETONIDE
  53. NASONEX [Concomitant]
     Active Substance: MOMETASONE FUROATE
  54. NEURONTIN [Concomitant]
     Active Substance: GABAPENTIN
  55. NORCO [Concomitant]
     Active Substance: ACETAMINOPHEN\HYDROCODONE BITARTRATE
  56. NORVIR [Concomitant]
     Active Substance: RITONAVIR
     Indication: HIV infection
  57. NYSTATIN [Concomitant]
     Active Substance: NYSTATIN
  58. OMEPRAZOLE [Concomitant]
     Active Substance: OMEPRAZOLE
  59. ONDANSETRON [Concomitant]
     Active Substance: ONDANSETRON
  60. OXYCODONE HYDROCHLORIDE [Concomitant]
     Active Substance: OXYCODONE HYDROCHLORIDE
  61. OXYCODONE AND ACETAMINOPHEN [Concomitant]
     Active Substance: ACETAMINOPHEN\OXYCODONE HYDROCHLORIDE
  62. POTASSIUM [Concomitant]
     Active Substance: POTASSIUM
  63. PRAMIPEXOLE [Concomitant]
     Active Substance: PRAMIPEXOLE\PRAMIPEXOLE DIHYDROCHLORIDE
  64. PRAVASTATIN SODIUM [Concomitant]
     Active Substance: PRAVASTATIN SODIUM
  65. PREDNISONE [Concomitant]
     Active Substance: PREDNISONE
  66. PRILOSEC [Concomitant]
     Active Substance: OMEPRAZOLE MAGNESIUM
  67. PRAVASTATIN [Concomitant]
     Active Substance: PRAVASTATIN
  68. PROVENTIL HFA [Concomitant]
     Active Substance: ALBUTEROL SULFATE
  69. RAMELTEON [Concomitant]
     Active Substance: RAMELTEON
  70. ROPINIROLE HYDROCHLORIDE [Concomitant]
     Active Substance: ROPINIROLE HYDROCHLORIDE
  71. ROZEREM [Concomitant]
     Active Substance: RAMELTEON
  72. SULFAMETHOXAZOLE [Concomitant]
     Active Substance: SULFAMETHOXAZOLE
  73. TIZANIDINE HYDROCHLORIDE [Concomitant]
     Active Substance: TIZANIDINE HYDROCHLORIDE
  74. TRAZODONE [Concomitant]
     Active Substance: TRAZODONE HYDROCHLORIDE
  75. ADENOSINE [Concomitant]
     Active Substance: ADENOSINE
  76. VALACYCLOVIR HYDROCHLORIDE [Concomitant]
     Active Substance: VALACYCLOVIR HYDROCHLORIDE
  77. WARFARIN SODIUM [Concomitant]
     Active Substance: WARFARIN SODIUM
  78. XANAX [Concomitant]
     Active Substance: ALPRAZOLAM
  79. XARELTO [Concomitant]
     Active Substance: RIVAROXABAN
  80. ZALEPLON [Concomitant]
     Active Substance: ZALEPLON
  81. ZELTA [LEVETIRACETAM] [Concomitant]
  82. ZYRTEC [Concomitant]
     Active Substance: CETIRIZINE HYDROCHLORIDE
  83. ZETIA [Concomitant]
     Active Substance: EZETIMIBE
     Dosage: UNK
  84. VENTOLIN HFA [Concomitant]
     Active Substance: ALBUTEROL SULFATE
  85. XANAX XR [Concomitant]
     Active Substance: ALPRAZOLAM
     Dosage: UNK
  86. MOBIC [Concomitant]
     Active Substance: MELOXICAM
  87. PEPCID [Concomitant]
     Active Substance: FAMOTIDINE
     Dosage: UNK

REACTIONS (6)
  - Chronic kidney disease [Not Recovered/Not Resolved]
  - Pain [Unknown]
  - Emotional distress [Unknown]
  - Anhedonia [Unknown]
  - Anxiety [Unknown]
  - Loss of personal independence in daily activities [Unknown]

NARRATIVE: CASE EVENT DATE: 20120101
